FAERS Safety Report 9319568 (Version 2)
Quarter: 2013Q2

REPORT INFORMATION
  Report Type: Spontaneous
  Country: JP (occurrence: JP)
  Receive Date: 20130530
  Receipt Date: 20130610
  Transmission Date: 20140414
  Serious: Yes (Other)
  Sender: FDA-Public Use
  Company Number: JP-ASTRAZENECA-2013SE36538

PATIENT
  Age: 40 Year
  Sex: Female

DRUGS (1)
  1. SYMBICORT TURBUHALER [Suspect]
     Indication: ASTHMA
     Dosage: 4 DF DAILY, NUMBER OF SEPARATE DOSAGES UNKNOWN
     Route: 055

REACTIONS (1)
  - Convulsion [Recovered/Resolved]
